FAERS Safety Report 7174401-5 (Version None)
Quarter: 2010Q4

REPORT INFORMATION
  Report Type: 
  Country: None (occurrence: None)
  Receive Date: 20101202
  Receipt Date: 20101118
  Transmission Date: 20110411
  Serious: Yes (Hospitalization, Congenital Anomaly)
  Sender: FDA-Public Use
  Company Number: IDA-00432

PATIENT
  Sex: Male

DRUGS (7)
  1. PROPRANOLOL [Suspect]
     Dosage: TRANSPLACENTAL
     Route: 064
  2. PROPRANOLOL [Suspect]
     Dosage: TRANSPLACENTAL
     Route: 064
  3. (DIHYDROCODEINE) [Suspect]
     Dosage: TRANSPLACENTAL
     Route: 064
  4. LAMICTAL [Suspect]
     Indication: EPILEPSY
     Dosage: 400 MG BID  TRANSPLACENTAL
     Route: 064
     Dates: start: 20090101
  5. LANSOPRAZOLE [Suspect]
     Dosage: TRANSPLACENTAL
     Route: 063
  6. (NORETHISTERONE) [Suspect]
     Dosage: TRANSPLACENTAL
  7. (SERTRALINE) [Suspect]
     Dosage: TRANSPLACENTAL
     Route: 064

REACTIONS (4)
  - ATRIAL SEPTAL DEFECT [None]
  - MATERNAL DRUGS AFFECTING FOETUS [None]
  - PREMATURE BABY [None]
  - VENTRICULAR SEPTAL DEFECT [None]
